FAERS Safety Report 23218091 (Version 2)
Quarter: 2023Q4

REPORT INFORMATION
  Report Type: Report from Study
  Country: US (occurrence: US)
  Receive Date: 20231122
  Receipt Date: 20231130
  Transmission Date: 20240110
  Serious: Yes (Other)
  Sender: FDA-Public Use
  Company Number: US-PFIZER INC-PV202300187157

PATIENT
  Sex: Female

DRUGS (12)
  1. METHYLPREDNISOLONE [Suspect]
     Active Substance: METHYLPREDNISOLONE
     Dosage: 16 MG, 2X/DAY
  2. METHYLPREDNISOLONE [Suspect]
     Active Substance: METHYLPREDNISOLONE
     Dosage: 12 MG, 2X/DAY
     Dates: start: 20221026
  3. JAKAFI [Suspect]
     Active Substance: RUXOLITINIB
     Indication: Chronic graft versus host disease
     Dosage: 10 MG, 2X/DAY
     Dates: start: 20221014
  4. JAKAFI [Suspect]
     Active Substance: RUXOLITINIB
     Dosage: 1 DF, 1X/DAY
  5. JAKAFI [Suspect]
     Active Substance: RUXOLITINIB
     Dosage: 1 DF, ONCE EVERY OTHER DAY
  6. JAKAFI [Suspect]
     Active Substance: RUXOLITINIB
     Dosage: 1 DF, TWICE EVERY OTHER DAY
  7. JAKAFI [Suspect]
     Active Substance: RUXOLITINIB
     Dosage: 1 DF, TWICE A DAY EVERY DAY
     Dates: start: 202301
  8. ACYCLOVIR [Concomitant]
     Active Substance: ACYCLOVIR
     Dosage: UNK
  9. FOSAMAX [Concomitant]
     Active Substance: ALENDRONATE SODIUM
     Dosage: UNK
  10. PENTAMIDINE [Concomitant]
     Active Substance: PENTAMIDINE
     Dosage: UNK
  11. PROTONIX [Concomitant]
     Active Substance: PANTOPRAZOLE SODIUM
     Dosage: UNK
  12. TACROLIMUS [Concomitant]
     Active Substance: TACROLIMUS
     Dosage: UNK

REACTIONS (9)
  - Immunosuppression [Unknown]
  - Graft versus host disease [Unknown]
  - Condition aggravated [Unknown]
  - Weight decreased [Recovered/Resolved]
  - Skin wrinkling [Unknown]
  - Peripheral swelling [Not Recovered/Not Resolved]
  - Hepatic enzyme increased [Unknown]
  - Pain in extremity [Not Recovered/Not Resolved]
  - Head discomfort [Unknown]

NARRATIVE: CASE EVENT DATE: 20221001
